FAERS Safety Report 21439045 (Version 3)
Quarter: 2022Q4

REPORT INFORMATION
  Report Type: Spontaneous
  Country: US (occurrence: US)
  Receive Date: 20221011
  Receipt Date: 20221228
  Transmission Date: 20230113
  Serious: Yes (Other)
  Sender: FDA-Public Use
  Company Number: US-PFIZER INC-202201193704

PATIENT
  Age: 37 Year
  Sex: Female

DRUGS (3)
  1. BLEOMYCIN SULFATE [Suspect]
     Active Substance: BLEOMYCIN SULFATE
     Indication: Choriocarcinoma
     Dosage: UNK, CYCLIC
  2. ETOPOSIDE [Suspect]
     Active Substance: ETOPOSIDE
     Indication: Choriocarcinoma
     Dosage: UNK, CYCLIC (3 CYCLES)
  3. CISPLATIN [Suspect]
     Active Substance: CISPLATIN
     Indication: Choriocarcinoma
     Dosage: UNK, CYCLIC (3 CYCLES)

REACTIONS (6)
  - Pancytopenia [Unknown]
  - Alopecia [Unknown]
  - Fatigue [Unknown]
  - Drug eruption [Unknown]
  - Raynaud^s phenomenon [Unknown]
  - Candida infection [Unknown]
